FAERS Safety Report 5945542-2 (Version None)
Quarter: 2008Q4

REPORT INFORMATION
  Report Type: 
  Country: None (occurrence: None)
  Receive Date: 20081107
  Receipt Date: 20081105
  Transmission Date: 20090506
  Serious: Yes (Life-Threatening)
  Sender: FDA-Public Use
  Company Number: US-B.I. PHARMACEUTICALS,INC./RIDGEFIELD-2008-BP-16810BP

PATIENT
  Sex: Male

DRUGS (1)
  1. ZANTAC 75 [Suspect]
     Dosage: 75MG
     Route: 048

REACTIONS (8)
  - EYE PRURITUS [None]
  - EYE SWELLING [None]
  - NASAL CONGESTION [None]
  - NASAL DISCOMFORT [None]
  - NASAL INFLAMMATION [None]
  - PHARYNGEAL INFLAMMATION [None]
  - SPEECH DISORDER [None]
  - THROAT IRRITATION [None]
